FAERS Safety Report 4336688-3 (Version None)
Quarter: 2004Q2

REPORT INFORMATION
  Report Type: 
  Country: None (occurrence: None)
  Receive Date: 20040408
  Receipt Date: 20040331
  Transmission Date: 20050107
  Serious: Yes (Hospitalization)
  Sender: FDA-Public Use
  Company Number: 2004UW06458

PATIENT
  Sex: Female

DRUGS (2)
  1. TOPROL-XL [Suspect]
  2. CARDIZEM [Concomitant]

REACTIONS (4)
  - ATRIAL FIBRILLATION [None]
  - DRUG HYPERSENSITIVITY [None]
  - MEDICATION ERROR [None]
  - RASH [None]
